FAERS Safety Report 19012759 (Version 1)
Quarter: 2021Q1

REPORT INFORMATION
  Report Type: Spontaneous
  Country: US (occurrence: US)
  Receive Date: 20210316
  Receipt Date: 20210316
  Transmission Date: 20210420
  Serious: Yes (Hospitalization)
  Sender: FDA-Public Use
  Company Number: None

PATIENT
  Age: 81 Year
  Sex: Male
  Weight: 112.95 kg

DRUGS (15)
  1. METOPROLOL ER 75MG [Concomitant]
     Dates: start: 20170505
  2. CILOSTAZOL 100MG [Concomitant]
     Active Substance: CILOSTAZOL
     Dates: start: 20130507
  3. HYDROCHLOROTHIAZIDE 12.5MG [Concomitant]
     Active Substance: HYDROCHLOROTHIAZIDE
     Dates: start: 20060914
  4. ASPIRIN 325 MG [Concomitant]
     Active Substance: ASPIRIN
     Dates: start: 20040825
  5. BAMLANIVIMAB. [Suspect]
     Active Substance: BAMLANIVIMAB
     Indication: COVID-19
     Dosage: ?          OTHER FREQUENCY:ONCE;?
     Route: 042
     Dates: start: 20210312, end: 20210312
  6. PROGABALIN 100 MG [Concomitant]
     Dates: start: 20090911
  7. PANTOPRAZOLE DR 40MG [Concomitant]
     Dates: start: 20090508
  8. AMOXICILLIN. [Concomitant]
     Active Substance: AMOXICILLIN
  9. ALLOPURINOL 300MG [Concomitant]
     Active Substance: ALLOPURINOL
     Dates: start: 20161209
  10. MUCINEX DM [Concomitant]
     Active Substance: DEXTROMETHORPHAN HYDROBROMIDE\GUAIFENESIN
     Dates: start: 20190520
  11. PIOGLITAZONE 30MG [Concomitant]
     Active Substance: PIOGLITAZONE
     Dates: start: 20090529
  12. PFIZER?BIONTECH COVID?19 VACCINE [Suspect]
     Active Substance: TOZINAMERAN
  13. RAMPIRIL 5MG [Concomitant]
     Dates: start: 20020415
  14. ATORVASTATIN 40MG [Concomitant]
     Active Substance: ATORVASTATIN
     Dates: start: 20070928
  15. CPAP 13?1CMH20 [Concomitant]
     Dates: start: 20161121

REACTIONS (12)
  - Crepitations [None]
  - Haematocrit decreased [None]
  - Pneumonia viral [None]
  - Lymphopenia [None]
  - Chest X-ray abnormal [None]
  - Electrocardiogram T wave inversion [None]
  - Oxygen saturation decreased [None]
  - Haemoglobin decreased [None]
  - Dyspnoea [None]
  - Cough [None]
  - Aspartate aminotransferase increased [None]
  - Brain natriuretic peptide increased [None]

NARRATIVE: CASE EVENT DATE: 20210313
